FAERS Safety Report 8359052 (Version 3)
Quarter: 2012Q4

REPORT INFORMATION
  Report Type: Report from Study
  Country: US (occurrence: US)
  Receive Date: 20120127
  Receipt Date: 20121005
  Transmission Date: 20130627
  Serious: Yes (Other)
  Sender: FDA-Public Use
  Company Number: US-ABBOTT-12P-163-0895954-00

PATIENT
  Age: 48 None
  Sex: Female

DRUGS (12)
  1. HUMIRA [Suspect]
     Indication: PSORIASIS
     Dates: start: 20111103
  2. VICTOZA [Concomitant]
     Indication: DIABETES MELLITUS
     Route: 058
  3. CLARITIN D 24 HR [Concomitant]
     Indication: HYPERSENSITIVITY
  4. HYDROCHLOROTHIAZIDE [Concomitant]
     Indication: HYPERTENSION
  5. GEMFIBROZIL [Concomitant]
     Indication: BLOOD CHOLESTEROL INCREASED
  6. POTASSIUM CHLORIDE [Concomitant]
     Indication: PRODUCT USED FOR UNKNOWN INDICATION
     Dosage: CR8
  7. FLUOXETINE [Concomitant]
     Indication: DEPRESSION
  8. FISH OIL [Concomitant]
     Indication: SUPPLEMENTATION THERAPY
  9. ZIAC [Concomitant]
     Indication: HYPERTENSION
     Dosage: 10/6.25 milligrams
  10. FLEXERIL [Concomitant]
     Indication: MYALGIA
  11. MELOXICAM [Concomitant]
     Indication: ARTHRALGIA
  12. HYDROCODONE/ACETAMINOPHEN [Concomitant]
     Indication: PAIN

REACTIONS (7)
  - Heart valve incompetence [Not Recovered/Not Resolved]
  - Lymph gland infection [Not Recovered/Not Resolved]
  - Upper respiratory tract infection [Not Recovered/Not Resolved]
  - Middle ear effusion [Not Recovered/Not Resolved]
  - Cardiac disorder [Not Recovered/Not Resolved]
  - Neck mass [Unknown]
  - Lymphadenopathy [Unknown]
